FAERS Safety Report 19003581 (Version 1)
Quarter: 2021Q1

REPORT INFORMATION
  Report Type: Report from Study
  Country: DE (occurrence: DE)
  Receive Date: 20210312
  Receipt Date: 20210312
  Transmission Date: 20210420
  Serious: Yes (Death, Hospitalization, Other)
  Sender: FDA-Public Use
  Company Number: DE-TEVA-2021-DE-1890031

PATIENT
  Age: 54 Year
  Sex: Female

DRUGS (1)
  1. COPAXONE [Suspect]
     Active Substance: GLATIRAMER ACETATE
     Indication: MULTIPLE SCLEROSIS
     Dosage: 20 MILLIGRAM DAILY;
     Dates: start: 20150209, end: 20201103

REACTIONS (5)
  - Tendon rupture [Unknown]
  - Aplastic anaemia [Fatal]
  - Dyspnoea [Unknown]
  - Fatigue [Unknown]
  - Complications of bone marrow transplant [Unknown]

NARRATIVE: CASE EVENT DATE: 202010
